FAERS Safety Report 16855249 (Version 1)
Quarter: 2019Q3

REPORT INFORMATION
  Report Type: Spontaneous
  Country: US (occurrence: US)
  Receive Date: 20190805
  Receipt Date: 20190805
  Transmission Date: 20191005
  Serious: Yes (Other)
  Sender: FDA-Public Use
  Company Number: None

PATIENT
  Age: 68 Year
  Sex: Female
  Weight: 52.16 kg

DRUGS (6)
  1. PRAMIPEXOLE. [Suspect]
     Active Substance: PRAMIPEXOLE
     Indication: PARKINSON^S DISEASE
     Dosage: ?          QUANTITY:2 DF DOSAGE FORM;?
     Route: 048
     Dates: start: 20190615, end: 20190625
  2. AMLODIPINE [Concomitant]
     Active Substance: AMLODIPINE BESYLATE
  3. VALSARTAN. [Concomitant]
     Active Substance: VALSARTAN
  4. FISH OIL [Concomitant]
     Active Substance: FISH OIL
  5. FLAXSEED [Concomitant]
     Active Substance: FLAX SEED
  6. TRIHEXPHENIDYL [Concomitant]
     Active Substance: TRIHEXYPHENIDYL

REACTIONS (5)
  - Malaise [None]
  - Nausea [None]
  - Dizziness [None]
  - Anxiety [None]
  - Confusional state [None]

NARRATIVE: CASE EVENT DATE: 20190625
